FAERS Safety Report 5789743-5 (Version None)
Quarter: 2008Q2

REPORT INFORMATION
  Report Type: 
  Country: None (occurrence: None)
  Receive Date: 20080626
  Receipt Date: 20080213
  Transmission Date: 20081010
  Serious: No
  Sender: FDA-Public Use
  Company Number: A0709205A

PATIENT
  Age: 50 Year
  Sex: Female

DRUGS (2)
  1. ALLI [Suspect]
     Indication: DRUG USE FOR UNKNOWN INDICATION
  2. FOSAMAX PLUS D [Concomitant]

REACTIONS (3)
  - ANXIETY [None]
  - ARTHRALGIA [None]
  - PAIN [None]
